FAERS Safety Report 23694792 (Version 1)
Quarter: 2024Q2

REPORT INFORMATION
  Report Type: Spontaneous
  Country: TR (occurrence: TR)
  Receive Date: 20240402
  Receipt Date: 20240402
  Transmission Date: 20240716
  Serious: No
  Sender: FDA-Public Use
  Company Number: TR-ALKEM LABORATORIES LIMITED-TR-ALKEM-2024-02593

PATIENT
  Age: 39 Year
  Sex: Female

DRUGS (1)
  1. COLCHICINE [Suspect]
     Active Substance: COLCHICINE
     Indication: Chronic recurrent multifocal osteomyelitis
     Dosage: UNK, BID
     Route: 065

REACTIONS (1)
  - Therapy non-responder [Unknown]
